FAERS Safety Report 6219950-9 (Version None)
Quarter: 2009Q2

REPORT INFORMATION
  Report Type: 
  Country: None (occurrence: None)
  Receive Date: 20090609
  Receipt Date: 20090220
  Transmission Date: 20091009
  Serious: No
  Sender: FDA-Public Use
  Company Number: US-BAYER-200915623NA

PATIENT
  Age: 58 Year
  Sex: Female

DRUGS (1)
  1. ULTRAVIST (PHARMACY BULK) [Suspect]
     Indication: COMPUTERISED TOMOGRAM ABDOMEN
     Dosage: TOTAL DAILY DOSE: 100 ML  UNIT DOSE: 500 ML
     Route: 042
     Dates: start: 20090220, end: 20090220

REACTIONS (4)
  - ERYTHEMA [None]
  - SINUS CONGESTION [None]
  - SWELLING FACE [None]
  - THROAT TIGHTNESS [None]
